FAERS Safety Report 9467959 (Version 2)
Quarter: 2013Q3

REPORT INFORMATION
  Report Type: Spontaneous
  Country: US (occurrence: US)
  Receive Date: 20130821
  Receipt Date: 20130902
  Transmission Date: 20140515
  Serious: Yes (Other)
  Sender: FDA-Public Use
  Company Number: US-AMGEN-USASP2013057528

PATIENT
  Age: 62 Year
  Sex: Female

DRUGS (2)
  1. ENBREL [Suspect]
     Indication: RHEUMATOID ARTHRITIS
     Dosage: 50 MG, QWK
     Route: 058
     Dates: start: 20121211, end: 20130604
  2. ANTIBIOTICS [Suspect]
     Indication: PRODUCT USED FOR UNKNOWN INDICATION
     Dosage: UNK
     Route: 065

REACTIONS (7)
  - Cystitis [Not Recovered/Not Resolved]
  - Drug hypersensitivity [Recovered/Resolved]
  - Dysuria [Recovering/Resolving]
  - Cough [Not Recovered/Not Resolved]
  - Sinusitis [Recovered/Resolved]
  - Bronchitis [Recovered/Resolved]
  - Herpes zoster [Not Recovered/Not Resolved]
